FAERS Safety Report 7501644-0 (Version None)
Quarter: 2011Q2

REPORT INFORMATION
  Report Type: 
  Country: None (occurrence: None)
  Receive Date: 20110524
  Receipt Date: 20100716
  Transmission Date: 20111010
  Serious: No
  Sender: FDA-Public Use
  Company Number: US-MYLANLABS-2010S1012955

PATIENT
  Age: 45 Year
  Sex: Female

DRUGS (1)
  1. ACEBUTOLOL HCL [Suspect]
     Indication: BLOOD PRESSURE INCREASED
     Route: 048
     Dates: start: 20090401

REACTIONS (3)
  - BLOOD PRESSURE FLUCTUATION [None]
  - DRUG EFFECT DECREASED [None]
  - PALPITATIONS [None]
